FAERS Safety Report 4538851-5 (Version None)
Quarter: 2004Q4

REPORT INFORMATION
  Report Type: 
  Country: None (occurrence: None)
  Receive Date: 20041222
  Receipt Date: 20041207
  Transmission Date: 20050328
  Serious: Yes (Hospitalization, Other)
  Sender: FDA-Public Use
  Company Number: USA040670987

PATIENT
  Age: 40 Year
  Sex: Male
  Weight: 116 kg

DRUGS (2)
  1. HUMALOG [Suspect]
     Indication: DIABETES MELLITUS
     Dates: start: 20031216
  2. HUMULIN N [Suspect]
     Indication: DIABETES MELLITUS
     Dosage: 110 U DAY
     Dates: start: 20040101

REACTIONS (5)
  - BLINDNESS [None]
  - HYPERTENSION [None]
  - PHARMACEUTICAL PRODUCT COMPLAINT [None]
  - RENAL FAILURE [None]
  - RENAL TRANSPLANT [None]
